FAERS Safety Report 13381177 (Version 2)
Quarter: 2017Q2

REPORT INFORMATION
  Report Type: Spontaneous
  Country: US (occurrence: US)
  Receive Date: 20170329
  Receipt Date: 20170418
  Transmission Date: 20170830
  Serious: No
  Sender: FDA-Public Use
  Company Number: US-PFIZER INC-2017132405

PATIENT
  Age: 69 Year
  Sex: Female

DRUGS (1)
  1. PREMARIN [Suspect]
     Active Substance: ESTROGENS, CONJUGATED
     Indication: BLADDER DISCOMFORT
     Dosage: UNK
     Route: 067

REACTIONS (1)
  - Drug ineffective for unapproved indication [Not Recovered/Not Resolved]
